FAERS Safety Report 6204122-4 (Version None)
Quarter: 2009Q2

REPORT INFORMATION
  Report Type: 
  Country: None (occurrence: None)
  Receive Date: 20090526
  Receipt Date: 20090526
  Transmission Date: 20091009
  Serious: Yes (Other)
  Sender: FDA-Public Use
  Company Number: None

PATIENT
  Age: 48 Year
  Sex: Male
  Weight: 92.0802 kg

DRUGS (1)
  1. SIMVASTATIN [Suspect]
     Indication: BLOOD CHOLESTEROL INCREASED
     Dosage: 20MG 1/PER DAY PO
     Route: 048
     Dates: start: 20090520, end: 20090525

REACTIONS (3)
  - ANXIETY [None]
  - DEPRESSION [None]
  - PRODUCT SUBSTITUTION ISSUE [None]
